FAERS Safety Report 8041659-X (Version None)
Quarter: 2012Q1

REPORT INFORMATION
  Report Type: 
  Country: None (occurrence: None)
  Receive Date: 20120112
  Receipt Date: 20120104
  Transmission Date: 20120608
  Serious: Yes (Other)
  Sender: FDA-Public Use
  Company Number: GB-ELI_LILLY_AND_COMPANY-GB201201000790

PATIENT
  Age: 30 Year
  Weight: 72 kg

DRUGS (2)
  1. DULOXETIME HYDROCHLORIDE [Suspect]
     Indication: URINARY INCONTINENCE
     Dosage: 40 MG, UNKNOWN
     Route: 048
     Dates: start: 20110809, end: 20111203
  2. NORDETTE-28 [Concomitant]

REACTIONS (2)
  - SYNCOPE [None]
  - ELECTROCARDIOGRAM QT PROLONGED [None]
